FAERS Safety Report 23978294 (Version 11)
Quarter: 2025Q2

REPORT INFORMATION
  Report Type: Report from Study
  Country: US (occurrence: US)
  Receive Date: 20240614
  Receipt Date: 20250417
  Transmission Date: 20250717
  Serious: Yes (Hospitalization)
  Sender: SAREPTA THERAPEUTICS
  Company Number: US-SAREPTA THERAPEUTICS INC.-SRP2024-004729

PATIENT
  Age: 4 Year
  Sex: Male
  Weight: 17.3 kg

DRUGS (13)
  1. ELEVIDYS [Suspect]
     Active Substance: DELANDISTROGENE MOXEPARVOVEC-ROKL
     Indication: Duchenne muscular dystrophy
     Route: 042
     Dates: start: 20240430, end: 20240430
  2. PREDNISOLONE [Concomitant]
     Active Substance: PREDNISOLONE
     Indication: Duchenne muscular dystrophy
     Dosage: 27 MG/ 9 ML QD
     Dates: start: 20240321, end: 20240603
  3. PREDNISOLONE [Concomitant]
     Active Substance: PREDNISOLONE
     Indication: Alanine aminotransferase increased
     Dosage: 45 MG/ 15 ML, QD
     Route: 048
     Dates: start: 20240604
  4. PREDNISOLONE [Concomitant]
     Active Substance: PREDNISOLONE
     Indication: Aspartate aminotransferase increased
  5. ZYRTEC [Concomitant]
     Active Substance: CETIRIZINE HYDROCHLORIDE
     Indication: Seasonal allergy
     Dosage: 2.5 MILLILITER, QD
     Route: 048
     Dates: start: 2021
  6. CIPRODEX [Concomitant]
     Active Substance: CIPROFLOXACIN HYDROCHLORIDE\DEXAMETHASONE
     Indication: Otitis media
     Dosage: 4 DROPS, BID
     Route: 048
     Dates: start: 20230222, end: 202312
  7. ECHINACEA HERB [ECHINACEA SPP.] [Concomitant]
     Indication: Prophylaxis
     Dosage: 3 DROPS, QD
     Route: 048
     Dates: start: 202310
  8. FISH OIL [Concomitant]
     Active Substance: FISH OIL
     Indication: Prophylaxis
     Dosage: 2.5 MILLILITER, QD
     Route: 048
     Dates: start: 202310
  9. MUCINEX CHILDREN^S FREEFROM COUGH + MUCUS [Concomitant]
     Indication: Seasonal allergy
     Dosage: 1 PACKET, QD
     Route: 048
     Dates: start: 2021, end: 202309
  10. ONDANSETRON [Concomitant]
     Active Substance: ONDANSETRON
     Indication: Nausea
     Route: 048
     Dates: start: 20240503, end: 20240513
  11. ONDANSETRON [Concomitant]
     Active Substance: ONDANSETRON
     Indication: Decreased appetite
  12. CALCIUM [Concomitant]
     Active Substance: CALCIUM
     Indication: Supplementation therapy
     Dosage: 1 TABLET, QD
     Route: 048
     Dates: start: 2024
  13. CHOLECALCIFEROL [Concomitant]
     Active Substance: CHOLECALCIFEROL
     Indication: Supplementation therapy
     Dosage: UNK, QD
     Route: 048
     Dates: start: 2024

REACTIONS (7)
  - Gamma-glutamyltransferase increased [Recovered/Resolved]
  - Blood bilirubin increased [Recovered/Resolved]
  - Aspartate aminotransferase increased [Recovered/Resolved]
  - Alanine aminotransferase increased [Recovered/Resolved]
  - Diarrhoea [Recovered/Resolved]
  - Decreased appetite [Recovered/Resolved]
  - Ocular icterus [Recovered/Resolved]

NARRATIVE: CASE EVENT DATE: 20240604
